FAERS Safety Report 7106284-3 (Version None)
Quarter: 2010Q4

REPORT INFORMATION
  Report Type: 
  Country: None (occurrence: None)
  Receive Date: 20101116
  Receipt Date: 20100903
  Transmission Date: 20110411
  Serious: Yes (Other)
  Sender: FDA-Public Use
  Company Number: PHHY2010US58700

PATIENT
  Age: 56 Year
  Sex: Female

DRUGS (1)
  1. CYCLOSPORINE [Suspect]
     Indication: LYMPHOCYTOSIS

REACTIONS (3)
  - AUTOIMMUNE LYMPHOPROLIFERATIVE SYNDROME [None]
  - HYPERTENSION [None]
  - NATURAL KILLER CELL COUNT INCREASED [None]
